FAERS Safety Report 11507082 (Version 1)
Quarter: 2015Q3

REPORT INFORMATION
  Report Type: Spontaneous
  Country: US (occurrence: None)
  Receive Date: 20150914
  Receipt Date: 20150914
  Transmission Date: 20151125
  Serious: No
  Sender: FDA-Public Use
  Company Number: None

PATIENT
  Age: 66 Year
  Sex: Female

DRUGS (8)
  1. CITALOPRAM [Concomitant]
     Active Substance: CITALOPRAM HYDROBROMIDE
  2. VITAMIN D [Concomitant]
     Active Substance: CHOLECALCIFEROL
  3. MINERAL [Concomitant]
  4. MULTI VIT TAB [Concomitant]
  5. AFINITOR [Suspect]
     Active Substance: EVEROLIMUS
     Indication: URINARY TRACT DISORDER
     Route: 048
     Dates: start: 20150720
  6. LEVOTHYROXIN [Concomitant]
     Active Substance: LEVOTHYROXINE
  7. AFINITOR [Suspect]
     Active Substance: EVEROLIMUS
     Indication: RENAL CANCER
     Route: 048
     Dates: start: 20150720
  8. AFINITOR [Suspect]
     Active Substance: EVEROLIMUS
     Indication: SOFT TISSUE DISORDER
     Route: 048
     Dates: start: 20150720

REACTIONS (1)
  - Local swelling [None]

NARRATIVE: CASE EVENT DATE: 201509
